FAERS Safety Report 20721887 (Version 1)
Quarter: 2022Q2

REPORT INFORMATION
  Report Type: Spontaneous
  Country: US (occurrence: US)
  Receive Date: 20220418
  Receipt Date: 20220418
  Transmission Date: 20220721
  Serious: No
  Sender: FDA-Public Use
  Company Number: US-PFIZER INC-202101006880

PATIENT
  Age: 93 Year
  Sex: Male

DRUGS (2)
  1. VYNDAMAX [Suspect]
     Active Substance: TAFAMIDIS
     Dosage: 61 MG, 1X/DAY
  2. TAGAMET [Suspect]
     Active Substance: CIMETIDINE
     Dosage: 200 MG

REACTIONS (2)
  - Throat irritation [Unknown]
  - Oral discomfort [Unknown]
